FAERS Safety Report 6344222-1 (Version None)
Quarter: 2009Q3

REPORT INFORMATION
  Report Type: 
  Country: None (occurrence: None)
  Receive Date: 20090908
  Receipt Date: 20090827
  Transmission Date: 20100115
  Serious: Yes (Hospitalization, Other)
  Sender: FDA-Public Use
  Company Number: JP-PFIZER INC-2009261113

PATIENT
  Age: 69 Year

DRUGS (3)
  1. FARMORUBICIN [Suspect]
     Indication: HEPATIC NEOPLASM MALIGNANT
     Dosage: 20 MG, 1X/DAY
     Route: 013
     Dates: start: 20090818, end: 20090818
  2. GELATIN [Suspect]
     Indication: HEPATIC NEOPLASM MALIGNANT
     Dosage: 1 MM DAILY
     Route: 013
     Dates: start: 20090818, end: 20090818
  3. LIPIODOL ULTRA-FLUID [Concomitant]
     Dosage: 10 ML
     Route: 013
     Dates: start: 20090818, end: 20090818

REACTIONS (4)
  - ERYTHEMA [None]
  - PERIPHERAL ISCHAEMIA [None]
  - PURPURA [None]
  - SKIN DISORDER [None]
